FAERS Safety Report 25917732 (Version 1)
Quarter: 2025Q4

REPORT INFORMATION
  Report Type: Spontaneous
  Country: US (occurrence: US)
  Receive Date: 20251014
  Receipt Date: 20251014
  Transmission Date: 20260117
  Serious: No
  Sender: Kenvue
  Company Number: US-KENVUE-20250911839

PATIENT
  Sex: Female

DRUGS (1)
  1. IMODIUM MULTI-SYMPTOM RELIEF [Suspect]
     Active Substance: DIMETHICONE\LOPERAMIDE HYDROCHLORIDE
     Indication: Diarrhoea
     Dosage: TOOK TWO CAPLETS, THEN A COUPLE OF TIMES IN THE DAY, I TOOK ONE, THEN YESTERDAY, I TOOK IT AGAIN, AN
     Route: 048
     Dates: start: 20250917

REACTIONS (1)
  - Incorrect product administration duration [Unknown]
